FAERS Safety Report 23849201 (Version 2)
Quarter: 2024Q4

REPORT INFORMATION
  Report Type: Spontaneous
  Country: US (occurrence: US)
  Receive Date: 20240513
  Receipt Date: 20241230
  Transmission Date: 20250115
  Serious: Yes (Hospitalization, Other)
  Sender: SANOFI AVENTIS
  Company Number: US-SA-SAC20240511000494

PATIENT
  Sex: Female

DRUGS (11)
  1. KEVZARA [Suspect]
     Active Substance: SARILUMAB
     Indication: Rheumatoid arthritis
     Dosage: 200 MG, QOW
     Route: 058
  2. ASCORBIC ACID [Concomitant]
     Active Substance: ASCORBIC ACID
     Dosage: UNK
  3. VITAMIN D3 [Concomitant]
     Active Substance: CHOLECALCIFEROL
     Dosage: UNK
  4. FOLIC ACID [Concomitant]
     Active Substance: FOLIC ACID
     Dosage: UNK
  5. MELOXICAM [Concomitant]
     Active Substance: MELOXICAM
     Dosage: UNK
  6. METHOTREXATE [Concomitant]
     Active Substance: METHOTREXATE
     Dosage: UNK
  7. OMEPRAZOLE [Concomitant]
     Active Substance: OMEPRAZOLE
     Dosage: UNK
  8. TIZANIDINE [Concomitant]
     Active Substance: TIZANIDINE
     Dosage: UNK
  9. DULOXETINE [Concomitant]
     Active Substance: DULOXETINE
     Dosage: UNK
  10. HYDROXYCHLOROQUINE [Concomitant]
     Active Substance: HYDROXYCHLOROQUINE
     Dosage: UNK
  11. CYCLOBENZAPRINE [Concomitant]
     Active Substance: CYCLOBENZAPRINE
     Dosage: UNK

REACTIONS (11)
  - Pneumonia [Unknown]
  - Rash pruritic [Unknown]
  - Cough [Unknown]
  - Decreased appetite [Unknown]
  - Depression [Unknown]
  - Memory impairment [Unknown]
  - Fatigue [Unknown]
  - Asthenia [Unknown]
  - Disturbance in attention [Unknown]
  - Injection site rash [Not Recovered/Not Resolved]
  - Injection site pruritus [Not Recovered/Not Resolved]
